FAERS Safety Report 4694213-1 (Version None)
Quarter: 2005Q2

REPORT INFORMATION
  Report Type: 
  Country: None (occurrence: None)
  Receive Date: 20050614
  Receipt Date: 20050304
  Transmission Date: 20051028
  Serious: No
  Sender: FDA-Public Use
  Company Number: USA050392401

PATIENT
  Age: 60 Year
  Sex: Male

DRUGS (4)
  1. CIALIS [Suspect]
     Indication: ERECTILE DYSFUNCTION
     Dosage: 20 MG
     Dates: start: 20050301
  2. PREDNISONE (PREDNISONE) [Concomitant]
  3. METFORMIN HCL [Concomitant]
  4. ORAL DIABETES MEDICATION [Concomitant]

REACTIONS (1)
  - DRUG INEFFECTIVE [None]
